FAERS Safety Report 14179005 (Version 3)
Quarter: 2018Q1

REPORT INFORMATION
  Report Type: Spontaneous
  Country: US (occurrence: US)
  Receive Date: 20171110
  Receipt Date: 20180226
  Transmission Date: 20180508
  Serious: Yes (Disabling)
  Sender: FDA-Public Use
  Company Number: US-009507513-1711USA002595

PATIENT
  Age: 63 Year
  Sex: Female

DRUGS (2)
  1. ISENTRESS [Suspect]
     Active Substance: RALTEGRAVIR POTASSIUM
     Dosage: 1200 MG, QD
     Route: 048
  2. ISENTRESS [Suspect]
     Active Substance: RALTEGRAVIR POTASSIUM
     Indication: HIV INFECTION
     Dosage: 1200 MG, BID
     Route: 048

REACTIONS (5)
  - Swelling face [Unknown]
  - Inappropriate schedule of drug administration [Unknown]
  - Skin reaction [Unknown]
  - Malaise [Unknown]
  - Overdose [Unknown]
